FAERS Safety Report 7046780-0 (Version None)
Quarter: 2010Q4

REPORT INFORMATION
  Report Type: 
  Country: None (occurrence: None)
  Receive Date: 20101015
  Receipt Date: 20101013
  Transmission Date: 20110411
  Serious: Yes (Death, Hospitalization)
  Sender: FDA-Public Use
  Company Number: MX-B.I. PHARMACEUTICALS,INC./RIDGEFIELD-2010-MX-00281MX

PATIENT
  Sex: Male
  Weight: 67 kg

DRUGS (3)
  1. SPIRIVA [Suspect]
     Indication: BRONCHIAL DISORDER
     Dosage: ONE CAPSULE
     Route: 055
     Dates: start: 20100709
  2. ALMETEC [Concomitant]
     Indication: CARDIAC DISORDER
  3. NORFENON [Concomitant]
     Indication: CARDIAC DISORDER

REACTIONS (1)
  - ARRHYTHMIA [None]
